FAERS Safety Report 18953278 (Version 1)
Quarter: 2021Q1

REPORT INFORMATION
  Report Type: Report from Study
  Country: CO (occurrence: CO)
  Receive Date: 20210301
  Receipt Date: 20210301
  Transmission Date: 20210420
  Serious: Yes (Other)
  Sender: FDA-Public Use
  Company Number: NVSC2021CO033608

PATIENT
  Sex: Male
  Weight: 94 kg

DRUGS (3)
  1. DORZOLAMID/TIMOLOL [Concomitant]
     Active Substance: DORZOLAMIDE HYDROCHLORIDE\TIMOLOL MALEATE
     Dosage: 1 DF, Q12H
     Route: 047
  2. LOSARTAN. [Suspect]
     Active Substance: LOSARTAN
     Indication: HYPERTENSION
     Dosage: 50 MG, Q12H
     Route: 048
  3. ACETYLSALICYLIC ACID [Concomitant]
     Active Substance: ASPIRIN
     Indication: BLOOD DISORDER
     Dosage: 100 MG
     Route: 048

REACTIONS (6)
  - Pathologic myopia [Unknown]
  - Visual impairment [Unknown]
  - Glaucoma [Unknown]
  - Macular oedema [Unknown]
  - Retinopathy [Unknown]
  - Off label use [Unknown]

NARRATIVE: CASE EVENT DATE: 2001
